FAERS Safety Report 6121167-3 (Version None)
Quarter: 2009Q1

REPORT INFORMATION
  Report Type: 
  Country: None (occurrence: None)
  Receive Date: 20090317
  Receipt Date: 20090311
  Transmission Date: 20090719
  Serious: Yes (Hospitalization)
  Sender: FDA-Public Use
  Company Number: B0564312A

PATIENT
  Age: 67 Year
  Sex: Male

DRUGS (1)
  1. AUGMENTIN '125' [Suspect]
     Indication: SKIN DISORDER
     Route: 048
     Dates: start: 20090226, end: 20090302

REACTIONS (5)
  - DIARRHOEA [None]
  - FAECES PALE [None]
  - JAUNDICE [None]
  - PRURITUS GENERALISED [None]
  - URINE ANALYSIS ABNORMAL [None]
